FAERS Safety Report 8174420-6 (Version None)
Quarter: 2012Q1

REPORT INFORMATION
  Report Type: 
  Country: None (occurrence: None)
  Receive Date: 20120229
  Receipt Date: 20120220
  Transmission Date: 20120608
  Serious: Yes (Hospitalization, Other)
  Sender: FDA-Public Use
  Company Number: FR-ABBOTT-11P-056-0883187-00

PATIENT
  Sex: Male

DRUGS (3)
  1. COSOPT [Concomitant]
     Indication: PRODUCT USED FOR UNKNOWN INDICATION
  2. HUMIRA [Suspect]
     Indication: ANKYLOSING SPONDYLITIS
     Dates: start: 20100701, end: 20111107
  3. VEXOL [Concomitant]
     Indication: PRODUCT USED FOR UNKNOWN INDICATION

REACTIONS (7)
  - C-REACTIVE PROTEIN INCREASED [None]
  - AUTOIMMUNE THROMBOCYTOPENIA [None]
  - CIRCULATING ANTICOAGULANT POSITIVE [None]
  - LEUKOCYTOSIS [None]
  - CARDIOLIPIN ANTIBODY POSITIVE [None]
  - DEEP VEIN THROMBOSIS [None]
  - UNEVALUABLE EVENT [None]
